FAERS Safety Report 17465535 (Version 2)
Quarter: 2020Q1

REPORT INFORMATION
  Report Type: Spontaneous
  Country: US (occurrence: US)
  Receive Date: 20200227
  Receipt Date: 20200324
  Transmission Date: 20200409
  Serious: Yes (Hospitalization, Other)
  Sender: FDA-Public Use
  Company Number: US-DRREDDYS-USA/USA/20/0120219

PATIENT
  Age: 53 Year
  Sex: Female

DRUGS (2)
  1. SEVELAMER CARBONATE TABLETS, 800 MG [Suspect]
     Active Substance: SEVELAMER CARBONATE
     Indication: END STAGE RENAL DISEASE
     Route: 065
  2. CINACALCET. [Concomitant]
     Active Substance: CINACALCET
     Indication: PRODUCT USED FOR UNKNOWN INDICATION

REACTIONS (2)
  - Lower gastrointestinal haemorrhage [Recovered/Resolved]
  - Colitis [Unknown]
